FAERS Safety Report 22006076 (Version 5)
Quarter: 2023Q4

REPORT INFORMATION
  Report Type: Other
  Country: CN (occurrence: None)
  Receive Date: 20230217
  Receipt Date: 20231020
  Transmission Date: 20240110
  Serious: Yes (Other)
  Sender: FDA-Public Use
  Company Number: CN-ROCHE-3284780

PATIENT
  Age: 55 Year
  Sex: Female
  Weight: 60 kg

DRUGS (4)
  1. ALECTINIB [Suspect]
     Active Substance: ALECTINIB
     Indication: Lung neoplasm malignant
     Route: 048
     Dates: start: 20200109
  2. ALECTINIB [Suspect]
     Active Substance: ALECTINIB
     Route: 048
  3. ALECTINIB [Suspect]
     Active Substance: ALECTINIB
     Route: 048
  4. ALECTINIB [Suspect]
     Active Substance: ALECTINIB
     Route: 048

REACTIONS (11)
  - Metastasis [Not Recovered/Not Resolved]
  - Carcinoembryonic antigen decreased [Recovering/Resolving]
  - Muscle spasms [Not Recovered/Not Resolved]
  - Constipation [Recovered/Resolved]
  - Decreased appetite [Recovering/Resolving]
  - Weight decreased [Recovering/Resolving]
  - Platelet count increased [Not Recovered/Not Resolved]
  - Mean platelet volume increased [Not Recovered/Not Resolved]
  - Alopecia [Recovering/Resolving]
  - Muscle spasms [Recovered/Resolved]
  - Glomerular filtration rate decreased [Recovered/Resolved]

NARRATIVE: CASE EVENT DATE: 20220101
